FAERS Safety Report 10458417 (Version 2)
Quarter: 2015Q3

REPORT INFORMATION
  Report Type: Spontaneous
  Country: US (occurrence: US)
  Receive Date: 20140917
  Receipt Date: 20150723
  Transmission Date: 20151125
  Serious: No
  Sender: FDA-Public Use
  Company Number: US-SHIRE-US201405947

PATIENT
  Age: 8 Year
  Sex: Male
  Weight: 24.94 kg

DRUGS (1)
  1. INTUNIV [Suspect]
     Active Substance: GUANFACINE HYDROCHLORIDE
     Indication: PRODUCT USED FOR UNKNOWN INDICATION
     Dosage: 2 MG, UNKNOWN
     Dates: start: 201312

REACTIONS (3)
  - Insomnia [Not Recovered/Not Resolved]
  - Negativism [Not Recovered/Not Resolved]
  - Daydreaming [Not Recovered/Not Resolved]
